FAERS Safety Report 10359570 (Version 2)
Quarter: 2014Q3

REPORT INFORMATION
  Report Type: Spontaneous
  Country: US (occurrence: US)
  Receive Date: 20140804
  Receipt Date: 20140808
  Transmission Date: 20150326
  Serious: No
  Sender: FDA-Public Use
  Company Number: US-BAYER-2014-113719

PATIENT
  Age: 90 Year
  Sex: Female
  Weight: 50.79 kg

DRUGS (6)
  1. ALEVE [Suspect]
     Active Substance: NAPROXEN SODIUM
     Indication: NEUROPATHY PERIPHERAL
  2. ALEVE [Suspect]
     Active Substance: NAPROXEN SODIUM
     Indication: NECK PAIN
     Dosage: 1 DF, PRN
     Route: 048
  3. ALEVE [Suspect]
     Active Substance: NAPROXEN SODIUM
     Indication: NEURALGIA
  4. ALEVE [Suspect]
     Active Substance: NAPROXEN SODIUM
     Indication: NECK PAIN
     Dosage: 1 DF, ONCE
     Route: 048
     Dates: start: 20140728, end: 20140728
  5. ALEVE [Suspect]
     Active Substance: NAPROXEN SODIUM
     Indication: NEURALGIA
  6. ALEVE [Suspect]
     Active Substance: NAPROXEN SODIUM
     Indication: NEUROPATHY PERIPHERAL

REACTIONS (4)
  - Intentional product misuse [Unknown]
  - Cough [Recovered/Resolved]
  - Foreign body [Recovered/Resolved]
  - Wrong technique in drug usage process [None]

NARRATIVE: CASE EVENT DATE: 20140728
